FAERS Safety Report 5667873-6 (Version None)
Quarter: 2008Q1

REPORT INFORMATION
  Report Type: 
  Country: None (occurrence: None)
  Receive Date: 20080315
  Receipt Date: 20080204
  Transmission Date: 20080703
  Serious: No
  Sender: FDA-Public Use
  Company Number: US-ABBOTT-08P-163-0437309-00

PATIENT
  Sex: Male
  Weight: 63.56 kg

DRUGS (3)
  1. HUMIRA [Suspect]
     Indication: RHEUMATOID ARTHRITIS
     Route: 058
     Dates: start: 20030101
  2. HUMIRA [Suspect]
     Route: 058
     Dates: start: 20050101, end: 20050101
  3. METHYLPREDNISOLONE [Concomitant]
     Indication: OEDEMA PERIPHERAL

REACTIONS (3)
  - ARTHRITIS [None]
  - LIVER DISORDER [None]
  - PAIN [None]
